FAERS Safety Report 20350394 (Version 1)
Quarter: 2022Q1

REPORT INFORMATION
  Report Type: Spontaneous
  Country: TH (occurrence: TH)
  Receive Date: 20220119
  Receipt Date: 20220119
  Transmission Date: 20220423
  Serious: Yes (Other)
  Sender: FDA-Public Use
  Company Number: TH-PFIZER INC-202200029962

PATIENT
  Age: 40 Year
  Sex: Female
  Weight: 42 kg

DRUGS (1)
  1. VORICONAZOLE [Suspect]
     Active Substance: VORICONAZOLE
     Indication: Bronchopulmonary aspergillosis
     Dosage: 200 MG EVERY 12 HOURS (1 TABLET 2 TIMES ORALLY BEFORE MEAL)
     Route: 048

REACTIONS (2)
  - Overdose [Recovered/Resolved]
  - Neurotoxicity [Recovered/Resolved]
